FAERS Safety Report 20981646 (Version 1)
Quarter: 2022Q2

REPORT INFORMATION
  Report Type: Spontaneous
  Country: US (occurrence: US)
  Receive Date: 20220620
  Receipt Date: 20220620
  Transmission Date: 20220721
  Serious: No
  Sender: FDA-Public Use
  Company Number: US-PFIZER INC-PV202200002278

PATIENT
  Age: 52 Year
  Sex: Male
  Weight: 78.005 kg

DRUGS (2)
  1. PAXLOVID [Suspect]
     Active Substance: NIRMATRELVIR\RITONAVIR
     Indication: COVID-19 treatment
     Dosage: UNK(THE 5 ON PAXLOVID)
     Dates: start: 202206, end: 202206
  2. PAXLOVID [Suspect]
     Active Substance: NIRMATRELVIR\RITONAVIR
     Dosage: UNK(2ND CYCLE, NEXT 5 DAYS.)
     Dates: start: 202206, end: 202206

REACTIONS (1)
  - Therapeutic product effect incomplete [Unknown]
